FAERS Safety Report 9205117 (Version 3)
Quarter: 2013Q3

REPORT INFORMATION
  Report Type: Report from Study
  Country: US (occurrence: US)
  Receive Date: 20130402
  Receipt Date: 20130905
  Transmission Date: 20140515
  Serious: No
  Sender: FDA-Public Use
  Company Number: US-VERTEX PHARMACEUTICALS INC.-2013-004351

PATIENT
  Age: 15 Year
  Sex: Female

DRUGS (1)
  1. VX-770 [Suspect]
     Indication: CYSTIC FIBROSIS
     Dosage: 150 MG, BID
     Dates: start: 20120211

REACTIONS (3)
  - Asthma [Not Recovered/Not Resolved]
  - Bronchospasm [Unknown]
  - Cystic fibrosis related diabetes [Not Recovered/Not Resolved]
